FAERS Safety Report 6504069-X (Version None)
Quarter: 2009Q4

REPORT INFORMATION
  Report Type: 
  Country: None (occurrence: None)
  Receive Date: 20091216
  Receipt Date: 20091216
  Transmission Date: 20100525
  Serious: No
  Sender: FDA-Public Use
  Company Number: None

PATIENT
  Age: 70 Year
  Sex: Female
  Weight: 67.1324 kg

DRUGS (1)
  1. BUPROPION HCL [Suspect]
     Indication: ANXIETY
     Dosage: ONE TWICE A DAY PO
     Route: 048
     Dates: start: 20091210, end: 20091215

REACTIONS (2)
  - PRODUCT SUBSTITUTION ISSUE [None]
  - URTICARIA [None]
